FAERS Safety Report 7458448-7 (Version None)
Quarter: 2011Q2

REPORT INFORMATION
  Report Type: 
  Country: None (occurrence: None)
  Receive Date: 20110504
  Receipt Date: 20110426
  Transmission Date: 20111010
  Serious: Yes (Hospitalization)
  Sender: FDA-Public Use
  Company Number: B0716131A

PATIENT
  Sex: Male
  Weight: 14 kg

DRUGS (14)
  1. DIAMOX [Concomitant]
     Dosage: 75MG PER DAY
     Dates: end: 20100924
  2. VICCLOX [Concomitant]
     Dosage: 210MG PER DAY
     Route: 042
     Dates: end: 20101020
  3. TULOBUTEROL [Concomitant]
     Dosage: .5MG PER DAY
     Route: 062
  4. PULMICORT [Concomitant]
     Route: 055
  5. AMPHOTERICIN B [Concomitant]
     Dosage: 4ML PER DAY
     Route: 048
  6. ONON [Concomitant]
     Dosage: 95MG PER DAY
     Route: 048
     Dates: end: 20100922
  7. CYCLOSPORINE [Concomitant]
     Indication: IMMUNOSUPPRESSION
     Dosage: 42MG PER DAY
     Route: 065
     Dates: start: 20100918, end: 20101027
  8. METHOTREXATE [Concomitant]
     Indication: IMMUNOSUPPRESSION
     Dosage: 6MG PER DAY
     Route: 065
     Dates: start: 20100919, end: 20100924
  9. FLUDARA [Concomitant]
     Indication: ALLOGENIC BONE MARROW TRANSPLANTATION THERAPY
     Dosage: 24MG PER DAY
     Route: 042
     Dates: start: 20100910, end: 20100913
  10. KYTRIL [Concomitant]
     Dosage: 1.1MG PER DAY
     Route: 042
     Dates: end: 20100915
  11. URSO 250 [Concomitant]
     Dosage: 100MG PER DAY
     Route: 048
     Dates: end: 20100923
  12. BACCIDAL [Concomitant]
     Dosage: 3IUAX PER DAY
     Route: 048
     Dates: end: 20100923
  13. ALKERAN [Suspect]
     Indication: ALLOGENIC BONE MARROW TRANSPLANTATION THERAPY
     Dosage: 90MG PER DAY
     Route: 042
     Dates: start: 20100914, end: 20100915
  14. BUSULFAN [Concomitant]
     Indication: ALLOGENIC BONE MARROW TRANSPLANTATION THERAPY
     Dosage: 17.1MG PER DAY
     Route: 042
     Dates: start: 20100907, end: 20100910

REACTIONS (1)
  - PLEURAL EFFUSION [None]
